FAERS Safety Report 5489532-5 (Version None)
Quarter: 2007Q4

REPORT INFORMATION
  Report Type: 
  Country: None (occurrence: None)
  Receive Date: 20071016
  Receipt Date: 20071016
  Transmission Date: 20080405
  Serious: Yes (Hospitalization)
  Sender: FDA-Public Use
  Company Number: None

PATIENT
  Sex: Male
  Weight: 89.8122 kg

DRUGS (4)
  1. AVASTIN [Suspect]
     Indication: COLON CANCER METASTATIC
     Dosage: 650MG EVERY 21DAYS IV
     Route: 042
     Dates: start: 20061106, end: 20070801
  2. ELOXATIN [Suspect]
     Dosage: EVERY 21 DAYS IV
     Route: 042
     Dates: start: 20041228, end: 20070801
  3. OXALIPLATIN [Concomitant]
  4. LEUCOVORIN [Concomitant]

REACTIONS (3)
  - CONGESTIVE CARDIOMYOPATHY [None]
  - COUGH [None]
  - FEELING ABNORMAL [None]
